FAERS Safety Report 7800456-8 (Version None)
Quarter: 2011Q4

REPORT INFORMATION
  Report Type: 
  Country: None (occurrence: None)
  Receive Date: 20111006
  Receipt Date: 20111004
  Transmission Date: 20120403
  Serious: Yes (Hospitalization)
  Sender: FDA-Public Use
  Company Number: FR-PFIZER INC-2011209210

PATIENT
  Age: 50 Year
  Sex: Female

DRUGS (8)
  1. FLUCONAZOLE [Suspect]
     Dosage: 400 MG, 1X/DAY
     Route: 048
     Dates: start: 20110720, end: 20110823
  2. NEORAL [Suspect]
     Indication: LIVER TRANSPLANT
     Dosage: 200 MG, 1X/DAY
     Route: 048
     Dates: start: 20110810
  3. NEORAL [Suspect]
     Dosage: 400 MG A DAY
     Dates: start: 20110820, end: 20110820
  4. VALGANCICLOVIR [Suspect]
     Dosage: 450 MG, 2X/DAY
     Route: 048
     Dates: start: 20110803
  5. SOLU-MEDROL [Concomitant]
     Indication: IMMUNOSUPPRESSION
     Dosage: UNK
  6. TRAMADOL HCL [Suspect]
     Dosage: 100 MG, 1X/DAY
     Route: 048
     Dates: start: 20110728, end: 20110823
  7. MYCOPHENOLATE MOFETIL (CELLCEPT) [Suspect]
     Indication: IMMUNOSUPPRESSION
     Dosage: 1500 MG, 2X/DAY
     Route: 048
     Dates: start: 20110722
  8. NEORAL [Suspect]
     Dosage: 500 MG A DAY
     Dates: start: 20110821, end: 20110823

REACTIONS (2)
  - STATUS EPILEPTICUS [None]
  - OPSOCLONUS MYOCLONUS [None]
